FAERS Safety Report 20646998 (Version 9)
Quarter: 2022Q3

REPORT INFORMATION
  Report Type: Report from Study
  Country: US (occurrence: US)
  Receive Date: 20220329
  Receipt Date: 20220808
  Transmission Date: 20221026
  Serious: Yes (Hospitalization)
  Sender: FDA-Public Use
  Company Number: US-NOVARTISPH-NVSC2022US068950

PATIENT
  Age: 53 Year
  Sex: Female
  Weight: 106.58 kg

DRUGS (7)
  1. TREPROSTINIL [Suspect]
     Active Substance: TREPROSTINIL
     Indication: Pulmonary arterial hypertension
     Dosage: UNK
     Route: 041
  2. TREPROSTINIL [Suspect]
     Active Substance: TREPROSTINIL
     Dosage: 20 NG/KG/MIN, CONT
     Route: 042
     Dates: start: 20220308
  3. REMODULIN [Suspect]
     Active Substance: TREPROSTINIL
     Indication: Pulmonary arterial hypertension
     Dosage: 0.020 UG/KG, CONT
     Route: 042
     Dates: start: 20211001
  4. ZYRTEC [Suspect]
     Active Substance: CETIRIZINE HYDROCHLORIDE
     Indication: Product used for unknown indication
     Dosage: UNK
     Route: 065
  5. CHLORHEXIDINE [Suspect]
     Active Substance: CHLORHEXIDINE
     Indication: Product used for unknown indication
     Dosage: UNK
     Route: 065
  6. AMLODIPINE [Concomitant]
     Active Substance: AMLODIPINE BESYLATE
     Indication: Product used for unknown indication
     Dosage: UNK
     Route: 065
  7. OPSUMIT [Concomitant]
     Active Substance: MACITENTAN
     Indication: Product used for unknown indication
     Dosage: UNK
     Route: 065

REACTIONS (26)
  - Fluid retention [Unknown]
  - Blood potassium decreased [Recovered/Resolved]
  - Hypervolaemia [Unknown]
  - Anaemia [Unknown]
  - Dizziness [Unknown]
  - Syncope [Unknown]
  - Chest pain [Unknown]
  - Dyspnoea [Unknown]
  - Sinusitis [Unknown]
  - Suspected COVID-19 [Unknown]
  - Chest discomfort [Unknown]
  - Ear discomfort [Unknown]
  - Nervousness [Unknown]
  - Presyncope [Unknown]
  - Asthenia [Unknown]
  - Condition aggravated [Unknown]
  - Seasonal allergy [Unknown]
  - Pyrexia [Unknown]
  - Blood test abnormal [Unknown]
  - Pruritus [Unknown]
  - Anxiety [Unknown]
  - Depression [Unknown]
  - Headache [Unknown]
  - Fatigue [Unknown]
  - Diarrhoea [Unknown]
  - Product preparation error [Unknown]

NARRATIVE: CASE EVENT DATE: 20220225
